FAERS Safety Report 5623329-8 (Version None)
Quarter: 2008Q1

REPORT INFORMATION
  Report Type: 
  Country: None (occurrence: None)
  Receive Date: 20080212
  Receipt Date: 20080201
  Transmission Date: 20080703
  Serious: Yes (Hospitalization)
  Sender: FDA-Public Use
  Company Number: DE-BAYER-200711190BVD

PATIENT
  Age: 61 Year
  Sex: Female
  Weight: 78 kg

DRUGS (78)
  1. SORAFENIB [Suspect]
     Indication: NON-SMALL CELL LUNG CANCER
     Dosage: TOTAL DAILY DOSE: 800 MG
     Route: 048
     Dates: start: 20070912, end: 20071025
  2. CISPLATIN [Suspect]
     Indication: NON-SMALL CELL LUNG CANCER
     Dosage: TOTAL DAILY DOSE: 137 MG
     Route: 042
     Dates: start: 20070912, end: 20070912
  3. CISPLATIN [Suspect]
     Dosage: TOTAL DAILY DOSE: 138.75 MG
     Route: 042
     Dates: start: 20071004, end: 20071004
  4. CISPLATIN [Suspect]
     Dosage: TOTAL DAILY DOSE: 138.75 MG
     Route: 042
     Dates: start: 20071026, end: 20071026
  5. GEMCITABINE [Suspect]
     Indication: NON-SMALL CELL LUNG CANCER
     Dosage: AS USED: 1250 MG/M2
     Dates: start: 20070919, end: 20070919
  6. GEMCITABINE [Suspect]
     Dosage: AS USED: 1250 MG/M2
     Dates: start: 20071011, end: 20071011
  7. GEMCITABINE [Suspect]
     Dosage: AS USED: 1250 MG/M2
     Dates: start: 20071004, end: 20071004
  8. GEMCITABINE [Suspect]
     Dosage: AS USED: 1250 MG/M2
     Dates: start: 20071026, end: 20071026
  9. GEMCITABINE [Suspect]
     Dosage: AS USED: 1250 MG/M2
     Dates: start: 20070912, end: 20070912
  10. AUGMENTIN '125' [Concomitant]
     Indication: PYREXIA
     Route: 048
     Dates: start: 20071028
  11. NOVALGIN [Concomitant]
     Indication: ABDOMINAL PAIN
     Route: 042
     Dates: start: 20071030, end: 20071030
  12. NOVALGIN [Concomitant]
     Route: 065
     Dates: start: 20071027, end: 20071027
  13. NOVALGIN [Concomitant]
     Route: 065
     Dates: start: 20071029, end: 20071030
  14. NOVALGIN [Concomitant]
     Route: 065
     Dates: start: 20071030, end: 20071030
  15. NOVALGIN [Concomitant]
     Route: 065
     Dates: start: 20070910, end: 20070911
  16. BUSCOPAN [Concomitant]
     Indication: PAIN
     Route: 065
     Dates: start: 20071027, end: 20071030
  17. CLEXANE [Concomitant]
     Indication: THROMBOSIS PROPHYLAXIS
     Route: 058
     Dates: start: 20071029
  18. CLEXANE [Concomitant]
     Route: 065
     Dates: start: 20071029
  19. POTASSIUM CHLORIDE [Concomitant]
     Indication: ELECTROLYTE SUBSTITUTION THERAPY
     Route: 042
     Dates: start: 20071030, end: 20071030
  20. METOCLOPRAMID [Concomitant]
     Indication: DIARRHOEA
     Route: 048
     Dates: start: 20071030, end: 20071030
  21. IRENAT [Concomitant]
     Indication: GOITRE
     Route: 048
     Dates: start: 20071025, end: 20071103
  22. IRENAT [Concomitant]
     Route: 065
     Dates: start: 20071024, end: 20071027
  23. PERENTEROL [Concomitant]
     Indication: DIARRHOEA
     Route: 065
     Dates: start: 20071025, end: 20071027
  24. BISOPROLOL FUMARATE [Concomitant]
     Indication: HYPERTENSION
     Route: 065
     Dates: start: 20071024, end: 20071030
  25. BISOPROLOL FUMARATE [Concomitant]
     Dates: start: 20071003
  26. PANTOZOL [Concomitant]
     Indication: PROPHYLAXIS AGAINST GASTROINTESTINAL ULCER
     Route: 065
     Dates: start: 20071030, end: 20071030
  27. PANTOZOL [Concomitant]
     Route: 065
     Dates: start: 20070913
  28. CARBIMAZOL [Concomitant]
     Indication: GOITRE
     Route: 065
     Dates: start: 20071024, end: 20071103
  29. GABAPENTIN [Concomitant]
     Indication: ABDOMINAL PAIN
     Route: 065
     Dates: start: 20071024, end: 20071027
  30. NORVASC [Concomitant]
     Indication: HYPERTENSION
     Route: 065
     Dates: start: 20071024, end: 20071030
  31. HYDROCHLOROTHIAZIDE [Concomitant]
     Indication: ABDOMINAL PAIN
     Route: 065
     Dates: start: 20071028, end: 20071030
  32. PASPERTIN [Concomitant]
     Indication: ABDOMINAL PAIN
     Route: 065
     Dates: start: 20071028
  33. SODIUM CHLORIDE 0.9% [Concomitant]
     Indication: ABDOMINAL PAIN
     Route: 065
     Dates: start: 20071025, end: 20071025
  34. SODIUM CHLORIDE 0.9% [Concomitant]
     Route: 065
     Dates: start: 20070913, end: 20070913
  35. SODIUM CHLORIDE 0.9% [Concomitant]
     Route: 065
     Dates: start: 20071026, end: 20071026
  36. SODIUM CHLORIDE 0.9% [Concomitant]
     Route: 065
     Dates: start: 20071005, end: 20071005
  37. SODIUM CHLORIDE 0.9% [Concomitant]
     Route: 065
     Dates: start: 20070912, end: 20070912
  38. SODIUM CHLORIDE 0.9% [Concomitant]
     Route: 065
     Dates: start: 20071028, end: 20071028
  39. SODIUM CHLORIDE 0.9% [Concomitant]
     Route: 065
     Dates: start: 20071028
  40. SODIUM CHLORIDE 0.9% [Concomitant]
     Route: 065
     Dates: start: 20071004, end: 20071004
  41. SODIUM CHLORIDE 0.9% [Concomitant]
     Route: 065
     Dates: start: 20071027, end: 20071027
  42. SODIUM CHLORIDE 0.9% [Concomitant]
     Route: 065
     Dates: start: 20071003, end: 20071003
  43. POTASSIUM CHLORIDE [Concomitant]
     Indication: HYPOKALAEMIA
     Route: 065
     Dates: start: 20071026, end: 20071028
  44. POTASSIUM CHLORIDE [Concomitant]
     Route: 065
     Dates: start: 20071004, end: 20071004
  45. POTASSIUM CHLORIDE [Concomitant]
     Route: 065
     Dates: start: 20071030
  46. POTASSIUM CHLORIDE [Concomitant]
     Route: 065
     Dates: start: 20070912, end: 20070912
  47. VOMEX [Concomitant]
     Indication: NAUSEA
     Route: 065
     Dates: start: 20071026, end: 20071026
  48. BUPRENORPHINE HCL [Concomitant]
     Indication: ABDOMINAL PAIN
     Route: 065
     Dates: start: 20071028, end: 20071030
  49. MCP [Concomitant]
     Indication: PROPHYLAXIS OF NAUSEA AND VOMITING
     Route: 065
     Dates: start: 20071005, end: 20071005
  50. BISOPROLOL [Concomitant]
     Indication: HYPERTENSION
     Route: 065
     Dates: end: 20071002
  51. TRAMADOL HCL [Concomitant]
     Indication: CHEST PAIN
     Route: 065
     Dates: start: 20070913, end: 20070913
  52. FORTECORTIN [Concomitant]
     Indication: PROPHYLAXIS OF NAUSEA AND VOMITING
     Route: 065
     Dates: start: 20071027, end: 20071027
  53. FORTECORTIN [Concomitant]
     Route: 065
     Dates: start: 20070913, end: 20070913
  54. FORTECORTIN [Concomitant]
     Route: 065
     Dates: start: 20070912, end: 20070912
  55. FORTECORTIN [Concomitant]
     Route: 065
     Dates: start: 20071026, end: 20071026
  56. FORTECORTIN [Concomitant]
     Route: 065
     Dates: start: 20071003, end: 20071003
  57. FORTECORTIN [Concomitant]
     Route: 065
     Dates: start: 20070911, end: 20070911
  58. FORTECORTIN [Concomitant]
     Route: 065
     Dates: start: 20071004, end: 20071004
  59. FORTECORTIN [Concomitant]
     Route: 065
     Dates: start: 20071005, end: 20071005
  60. FORTECORTIN [Concomitant]
     Route: 065
     Dates: start: 20071025, end: 20071025
  61. VERGENTAN [Concomitant]
     Indication: PROPHYLAXIS OF NAUSEA AND VOMITING
     Route: 065
     Dates: start: 20071026, end: 20071026
  62. VERGENTAN [Concomitant]
     Route: 065
     Dates: start: 20070912, end: 20070912
  63. VERGENTAN [Concomitant]
     Route: 065
     Dates: start: 20070919, end: 20070919
  64. VERGENTAN [Concomitant]
     Route: 065
     Dates: start: 20071004, end: 20071004
  65. VERGENTAN [Concomitant]
     Route: 065
     Dates: start: 20071011, end: 20071011
  66. ZOFRAN [Concomitant]
     Indication: PROPHYLAXIS OF NAUSEA AND VOMITING
     Route: 065
     Dates: start: 20071026, end: 20071027
  67. ZOFRAN [Concomitant]
     Route: 065
     Dates: start: 20071004, end: 20071004
  68. ZOFRAN [Concomitant]
     Route: 065
     Dates: start: 20070912, end: 20070912
  69. EMEND [Concomitant]
     Indication: PROPHYLAXIS OF NAUSEA AND VOMITING
     Route: 065
     Dates: start: 20070912, end: 20070912
  70. EMEND [Concomitant]
     Route: 065
     Dates: start: 20070913, end: 20070914
  71. EMEND [Concomitant]
     Route: 065
     Dates: start: 20071004, end: 20071004
  72. EMEND [Concomitant]
     Route: 065
     Dates: start: 20071027, end: 20071027
  73. EMEND [Concomitant]
     Route: 065
     Dates: start: 20071005, end: 20071005
  74. EMEND [Concomitant]
     Route: 065
     Dates: start: 20071026, end: 20071026
  75. LASIX [Concomitant]
     Indication: PROPHYLAXIS OF NAUSEA AND VOMITING
     Route: 065
     Dates: start: 20071026, end: 20071027
  76. LASIX [Concomitant]
     Route: 065
     Dates: start: 20070912, end: 20070912
  77. LASIX [Concomitant]
     Route: 065
     Dates: start: 20071004, end: 20071005
  78. INEGY [Concomitant]
     Indication: HYPERCHOLESTEROLAEMIA
     Route: 065

REACTIONS (5)
  - COAGULOPATHY [None]
  - INTESTINAL INFARCTION [None]
  - MALIGNANT NEOPLASM PROGRESSION [None]
  - MESENTERIC ARTERY THROMBOSIS [None]
  - RENAL INFARCT [None]
